FAERS Safety Report 9623336 (Version 1)
Quarter: 2013Q4

REPORT INFORMATION
  Report Type: Spontaneous
  Country: US (occurrence: None)
  Receive Date: 20131010
  Receipt Date: 20131010
  Transmission Date: 20140711
  Serious: Yes (Other)
  Sender: FDA-Public Use
  Company Number: VAL_02752_2013

PATIENT
  Age: 53 Year
  Sex: Female

DRUGS (9)
  1. LOPRESSOR (NOT SPECIFIED) [Suspect]
     Indication: HYPERTENSION
     Dosage: DF
  2. LOPRESSOR (NOT SPECIFIED) [Suspect]
     Indication: MIGRAINE
     Dosage: DF
  3. METOPROLOL [Suspect]
     Indication: HYPERTENSION
     Dosage: DF
  4. METOPROLOL [Suspect]
     Indication: MIGRAINE
     Dosage: DF
  5. ASPIRIN [Concomitant]
  6. EXCEDRIN [Suspect]
     Indication: HEADACHE
     Dosage: IN THE MORNING, AS NEEDED, BEFORE THE RECALL, DF, [AFTER THE RECALL] DF
  7. EXCEDRIN [Suspect]
     Indication: MIGRAINE
     Dosage: IN THE MORNING, AS NEEDED, BEFORE THE RECALL, DF, [AFTER THE RECALL] DF
  8. BYSTOLIC [Suspect]
     Indication: HYPERTENSION
     Dosage: DF
  9. BYSTOLIC [Suspect]
     Indication: MIGRAINE
     Dosage: DF

REACTIONS (6)
  - Hypertension [None]
  - Chest pain [None]
  - Migraine [None]
  - Dyspnoea [None]
  - Alopecia [None]
  - Condition aggravated [None]
